FAERS Safety Report 4878742-3 (Version None)
Quarter: 2005Q4

REPORT INFORMATION
  Report Type: 
  Country: None (occurrence: None)
  Receive Date: 20051209
  Receipt Date: 20050322
  Transmission Date: 20060501
  Serious: Yes (Other)
  Sender: FDA-Public Use
  Company Number: USA-2005-0020257

PATIENT
  Age: 16 Year
  Sex: Female
  Weight: 53.1 kg

DRUGS (4)
  1. OXYCONTIN [Suspect]
     Dosage: MG, SEE TEXT, INHALATION
     Route: 055
     Dates: start: 20041007, end: 20041007
  2. PERCOCET [Suspect]
  3. MARIJUANA (CANNABIS) [Suspect]
     Dosage: INHALATION
     Route: 055
  4. AMPHETAMINE SULFATE [Suspect]

REACTIONS (2)
  - OVERDOSE [None]
  - POLYSUBSTANCE ABUSE [None]
